FAERS Safety Report 4475205-4 (Version None)
Quarter: 2004Q4

REPORT INFORMATION
  Report Type: 
  Country: None (occurrence: None)
  Receive Date: 20041015
  Receipt Date: 20040914
  Transmission Date: 20050328
  Serious: Yes (Hospitalization)
  Sender: FDA-Public Use
  Company Number: FR-JNJFOC-20040602725

PATIENT
  Sex: Male
  Weight: 85 kg

DRUGS (6)
  1. RISPERDAL [Suspect]
     Indication: SCHIZOPHRENIA
     Route: 049
  2. LOXAPINE HCL [Suspect]
     Indication: SCHIZOPHRENIA
  3. TRIMEPRAZINE TAB [Suspect]
     Indication: SCHIZOPHRENIA
     Route: 049
  4. LOXAPINE HCL [Suspect]
     Route: 030
  5. TEMESTA [Concomitant]
     Dosage: 1 MG AND 2.5 MG
  6. STILNOX [Concomitant]

REACTIONS (1)
  - NEUROLEPTIC MALIGNANT SYNDROME [None]
